FAERS Safety Report 6003329-9 (Version None)
Quarter: 2008Q4

REPORT INFORMATION
  Report Type: 
  Country: None (occurrence: None)
  Receive Date: 20081216
  Receipt Date: 20080718
  Transmission Date: 20090506
  Serious: No
  Sender: FDA-Public Use
  Company Number: US-AMGEN-KDL295704

PATIENT
  Sex: Female

DRUGS (4)
  1. ENBREL [Suspect]
     Indication: RHEUMATOID ARTHRITIS
     Route: 058
     Dates: end: 20080706
  2. ENBREL [Suspect]
     Indication: PSORIASIS
  3. PLAQUENIL [Concomitant]
  4. METHOTREXATE [Concomitant]
     Route: 048

REACTIONS (1)
  - URTICARIA [None]
